FAERS Safety Report 11294527 (Version 1)
Quarter: 2015Q3

REPORT INFORMATION
  Report Type: Spontaneous
  Country: US (occurrence: None)
  Receive Date: 20150721
  Receipt Date: 20150721
  Transmission Date: 20151125
  Serious: Yes (Other)
  Sender: FDA-Public Use
  Company Number: 2015RIS00107

PATIENT
  Age: 76 Year
  Sex: Female

DRUGS (3)
  1. TIMOLOL MALEATE. [Suspect]
     Active Substance: TIMOLOL MALEATE
     Indication: GLAUCOMA
  2. LOSARTAN (LOSARTAN) [Concomitant]
     Active Substance: LOSARTAN
  3. PROTONIX [Concomitant]
     Active Substance: PANTOPRAZOLE SODIUM

REACTIONS (3)
  - Rales [None]
  - Interstitial lung disease [None]
  - Hypoxia [None]
